FAERS Safety Report 15192951 (Version 3)
Quarter: 2018Q4

REPORT INFORMATION
  Report Type: Spontaneous
  Country: FR (occurrence: FR)
  Receive Date: 20180725
  Receipt Date: 20180829
  Transmission Date: 20190204
  Serious: Yes (Hospitalization)
  Sender: FDA-Public Use
  Company Number: FR-TEVA-2018-FR-929792

PATIENT
  Age: 15 Year
  Sex: Male
  Weight: 110 kg

DRUGS (6)
  1. RISPERIDONE. [Suspect]
     Active Substance: RISPERIDONE
     Indication: POISONING DELIBERATE
     Route: 048
     Dates: start: 20180606, end: 20180606
  2. DESLORATADINE. [Suspect]
     Active Substance: DESLORATADINE
     Indication: POISONING DELIBERATE
     Route: 048
     Dates: start: 20180606, end: 20180606
  3. OGASTORO 15 MG, COMPRIM? ORODISPERSIBLE [Suspect]
     Active Substance: LANSOPRAZOLE
     Indication: POISONING DELIBERATE
     Route: 048
     Dates: start: 20180606, end: 20180606
  4. LANSOPRAZOLE. [Suspect]
     Active Substance: LANSOPRAZOLE
     Indication: POISONING DELIBERATE
     Route: 048
     Dates: start: 20180606, end: 20180606
  5. SERETIDE [Suspect]
     Active Substance: FLUTICASONE PROPIONATE\SALMETEROL XINAFOATE
     Indication: POISONING DELIBERATE
     Dosage: NON PR?CIS?E
     Route: 055
     Dates: start: 20180606, end: 20180606
  6. PYOSTACINE 500 MG, COMPRIM? PELLICUL? S?CABLE [Suspect]
     Active Substance: PRISTINAMYCIN
     Indication: POISONING DELIBERATE
     Route: 048
     Dates: start: 20180606, end: 20180606

REACTIONS (3)
  - Somnolence [Recovered/Resolved]
  - Blood creatine phosphokinase increased [Recovered/Resolved]
  - Myoglobin blood increased [Recovered/Resolved]

NARRATIVE: CASE EVENT DATE: 20180606
